FAERS Safety Report 9460655 (Version 1)
Quarter: 2013Q3

REPORT INFORMATION
  Report Type: Spontaneous
  Country: GB (occurrence: GB)
  Receive Date: 20130815
  Receipt Date: 20130815
  Transmission Date: 20140515
  Serious: Yes (Hospitalization)
  Sender: FDA-Public Use
  Company Number: GB-ELI_LILLY_AND_COMPANY-GB201308002750

PATIENT
  Sex: Female

DRUGS (4)
  1. HUMALOG LISPRO [Suspect]
  2. CYMBALTA [Suspect]
     Indication: DIABETIC NEUROPATHY
     Dosage: 120 MG, QD
     Route: 048
     Dates: start: 201307
  3. CYMBALTA [Suspect]
     Dosage: 60 MG, BID
     Route: 048
  4. INSULIN GLARGINE [Concomitant]
     Dosage: UNK

REACTIONS (3)
  - Diabetic ketoacidosis [Unknown]
  - Diabetic neuropathy [Unknown]
  - Orthostatic hypotension [Unknown]
